FAERS Safety Report 12557364 (Version 2)
Quarter: 2016Q3

REPORT INFORMATION
  Report Type: Spontaneous
  Country: BR (occurrence: BR)
  Receive Date: 20160714
  Receipt Date: 20160726
  Transmission Date: 20161109
  Serious: Yes (Other)
  Sender: FDA-Public Use
  Company Number: BR-PFIZER INC-2016328440

PATIENT
  Age: 76 Year
  Sex: Female
  Weight: 48 kg

DRUGS (6)
  1. VISCOTEARS [Concomitant]
     Active Substance: CARBOMER
     Dosage: UNK
     Dates: start: 2006, end: 201604
  2. XALATAN [Suspect]
     Active Substance: LATANOPROST
     Dosage: 3 DROPS IN EACH EYE, 3X/DAY
     Route: 047
     Dates: start: 2012
  3. SOMALGIN [Concomitant]
     Active Substance: ASPIRIN\DIHYDROXYALUMINUM AMINOACETATE ANHYDROUS\MAGNESIUM CARBONATE
     Dosage: UNK
     Dates: start: 2011
  4. LUT [Concomitant]
     Dosage: UNK
     Dates: start: 2012
  5. XALATAN [Suspect]
     Active Substance: LATANOPROST
     Indication: EYE DISORDER
     Dosage: 1 DROP EACH EYE TWICE A DAY
     Route: 047
     Dates: start: 2008, end: 2012
  6. HYABAK [Concomitant]
     Indication: LACRIMAL DISORDER
     Dosage: 1 DROP EACH EYE, TWICE A DAY
     Route: 047
     Dates: start: 2010

REACTIONS (5)
  - Visual acuity reduced [Not Recovered/Not Resolved]
  - Ocular hyperaemia [Not Recovered/Not Resolved]
  - Headache [Not Recovered/Not Resolved]
  - Drug prescribing error [Not Recovered/Not Resolved]
  - Product use issue [Recovered/Resolved]

NARRATIVE: CASE EVENT DATE: 2012
